FAERS Safety Report 7433413-4 (Version None)
Quarter: 2011Q2

REPORT INFORMATION
  Report Type: 
  Country: None (occurrence: None)
  Receive Date: 20110422
  Receipt Date: 20110415
  Transmission Date: 20111010
  Serious: Yes (Hospitalization)
  Sender: FDA-Public Use
  Company Number: US-ELI_LILLY_AND_COMPANY-US201103008793

PATIENT
  Sex: Female
  Weight: 104.76 kg

DRUGS (5)
  1. BYETTA [Suspect]
     Indication: TYPE 2 DIABETES MELLITUS
     Dosage: 5 UG, BID
     Route: 058
     Dates: start: 20070101, end: 20101201
  2. NOVOLOG [Concomitant]
     Indication: TYPE 2 DIABETES MELLITUS
     Dosage: UNK, PRN
  3. BYETTA [Suspect]
     Dosage: 10 UG, BID
     Route: 058
  4. METFORMIN [Concomitant]
     Indication: TYPE 2 DIABETES MELLITUS
     Dosage: 1000 MG, BID
     Route: 048
  5. BYETTA [Suspect]
     Dosage: 10 UG, BID
     Route: 058
     Dates: end: 20101201

REACTIONS (9)
  - BLOOD GLUCOSE DECREASED [None]
  - HAIR TEXTURE ABNORMAL [None]
  - BLOOD GLUCOSE INCREASED [None]
  - DIARRHOEA [None]
  - ALOPECIA [None]
  - WEIGHT DECREASED [None]
  - CHOLELITHIASIS [None]
  - NAUSEA [None]
  - JOINT INJURY [None]
